FAERS Safety Report 9879445 (Version 2)
Quarter: 2014Q2

REPORT INFORMATION
  Report Type: Spontaneous
  Country: BR (occurrence: BR)
  Receive Date: 20140206
  Receipt Date: 20140408
  Transmission Date: 20141212
  Serious: Yes (Other)
  Sender: FDA-Public Use
  Company Number: PHHY2014BR013142

PATIENT
  Age: 72 Year
  Sex: Female
  Weight: 46 kg

DRUGS (5)
  1. ALENDRONATE SANDOZ [Suspect]
     Indication: BONE DISORDER
     Dosage: 1 DF, QW (70MG FILM-COATED TABLET 1 TABLET EVERY WEEK)
     Route: 048
     Dates: end: 201312
  2. ALENDRONATE SANDOZ [Suspect]
     Dates: start: 20140127
  3. PURAN T4 [Concomitant]
     Indication: HYPOTHYROIDISM
     Dosage: 50 UG, QD
     Route: 048
  4. OMEPRAZOL [Concomitant]
     Indication: GASTRITIS
     Dosage: 40 MG, QD
     Route: 048
  5. NIMESULIDE [Concomitant]
     Indication: SPINAL PAIN
     Dosage: 1 DF, Q8H NOT EVERY DAY

REACTIONS (6)
  - Anger [Recovered/Resolved]
  - Arthralgia [Recovered/Resolved]
  - Myalgia [Recovered/Resolved]
  - Bone pain [Recovered/Resolved]
  - Pain [Recovered/Resolved]
  - Malaise [Recovered/Resolved]
